FAERS Safety Report 6913039-9 (Version None)
Quarter: 2010Q3

REPORT INFORMATION
  Report Type: 
  Country: None (occurrence: None)
  Receive Date: 20100806
  Receipt Date: 20090617
  Transmission Date: 20110219
  Serious: No
  Sender: FDA-Public Use
  Company Number: US-PFIZER INC-2009210374

PATIENT
  Sex: Female

DRUGS (1)
  1. DETROL [Suspect]
     Indication: MICTURITION DISORDER

REACTIONS (5)
  - CONSTIPATION [None]
  - DRUG EFFECT DECREASED [None]
  - DRY MOUTH [None]
  - DRY SKIN [None]
  - MICTURITION URGENCY [None]
